FAERS Safety Report 17824469 (Version 3)
Quarter: 2021Q2

REPORT INFORMATION
  Report Type: Report from Study
  Country: DE (occurrence: DE)
  Receive Date: 20200526
  Receipt Date: 20210618
  Transmission Date: 20210717
  Serious: Yes (Hospitalization)
  Sender: FDA-Public Use
  Company Number: DE-SA-2020SA063365

PATIENT
  Age: 57 Year
  Sex: Female

DRUGS (4)
  1. TERIFLUNOMIDE. [Suspect]
     Active Substance: TERIFLUNOMIDE
     Indication: MULTIPLE SCLEROSIS
     Dosage: 14 MG
     Route: 048
     Dates: start: 202001, end: 20200302
  2. TERIFLUNOMIDE. [Suspect]
     Active Substance: TERIFLUNOMIDE
     Dosage: 14 MG, QD
     Route: 048
     Dates: start: 202003, end: 2020
  3. VITAMIN D NOS [Concomitant]
     Active Substance: VITAMIN D NOS
     Indication: VITAMIN D DEFICIENCY
     Dosage: UNK UNK, QOW
     Route: 048
  4. TERIFLUNOMIDE. [Suspect]
     Active Substance: TERIFLUNOMIDE
     Dosage: 14 MG, QD
     Route: 048
     Dates: start: 202004

REACTIONS (25)
  - Limb discomfort [Unknown]
  - Diarrhoea [Recovering/Resolving]
  - Paraesthesia [Recovering/Resolving]
  - Flatulence [Recovered/Resolved]
  - Insomnia [Unknown]
  - Hypoaesthesia [Recovered/Resolved]
  - Hypertension [Recovered/Resolved]
  - Stress [Recovering/Resolving]
  - Disease recurrence [Unknown]
  - Heart rate increased [Recovering/Resolving]
  - Neuralgia [Unknown]
  - Joint range of motion decreased [Unknown]
  - Myalgia [Unknown]
  - Nerve compression [Unknown]
  - Faeces soft [Recovering/Resolving]
  - Gastrointestinal disorder [Recovering/Resolving]
  - Chills [Recovering/Resolving]
  - Fatigue [Unknown]
  - Asthenia [Unknown]
  - Abdominal pain upper [Recovered/Resolved]
  - Oral mucosal blistering [Recovered/Resolved]
  - Musculoskeletal stiffness [Unknown]
  - Musculoskeletal pain [Recovering/Resolving]
  - Stress at work [Unknown]
  - Discomfort [Recovered/Resolved]

NARRATIVE: CASE EVENT DATE: 2020
